FAERS Safety Report 8450919-X (Version None)
Quarter: 2012Q2

REPORT INFORMATION
  Report Type: 
  Country: None (occurrence: None)
  Receive Date: 20120620
  Receipt Date: 20120615
  Transmission Date: 20120825
  Serious: Yes (Other)
  Sender: FDA-Public Use
  Company Number: US-ABBOTT-12P-163-0946677-00

PATIENT
  Sex: Female
  Weight: 72.64 kg

DRUGS (11)
  1. SOMA [Concomitant]
     Indication: BACK DISORDER
  2. HUMIRA [Suspect]
     Indication: CROHN'S DISEASE
     Route: 058
     Dates: start: 20100101
  3. ROBAXIN [Concomitant]
     Indication: BACK DISORDER
  4. LEVSIN PB [Concomitant]
     Indication: CROHN'S DISEASE
  5. PREDNISONE TAB [Concomitant]
     Indication: CROHN'S DISEASE
  6. LITHIUM [Concomitant]
     Indication: BIPOLAR DISORDER
  7. SEROQUEL [Concomitant]
     Indication: BIPOLAR DISORDER
  8. TRAMADOL HCL [Concomitant]
     Indication: BACK DISORDER
  9. ASACOL [Concomitant]
     Indication: CROHN'S DISEASE
  10. OMEPRAZOLE [Concomitant]
     Indication: GASTROOESOPHAGEAL REFLUX DISEASE
  11. PERCOCET [Concomitant]
     Indication: BACK DISORDER

REACTIONS (7)
  - ABSCESS RUPTURE [None]
  - ABORTION INDUCED [None]
  - TRICHOMONIASIS [None]
  - FURUNCLE [None]
  - VAGINAL HAEMORRHAGE [None]
  - PROCTALGIA [None]
  - ABDOMINAL PAIN [None]
